FAERS Safety Report 13176601 (Version 1)
Quarter: 2017Q1

REPORT INFORMATION
  Report Type: Spontaneous
  Country: FR (occurrence: FR)
  Receive Date: 20170201
  Receipt Date: 20170201
  Transmission Date: 20170428
  Serious: Yes (Other)
  Sender: FDA-Public Use
  Company Number: FR-009507513-1701FRA011882

PATIENT
  Age: 20 Year
  Sex: Female

DRUGS (1)
  1. NEXPLANON [Suspect]
     Active Substance: ETONOGESTREL
     Indication: CONTRACEPTION
     Dosage: 1 DF, UNK
     Route: 059
     Dates: start: 20140123

REACTIONS (7)
  - Inappropriate schedule of drug administration [Unknown]
  - Complication associated with device [Not Recovered/Not Resolved]
  - Metrorrhagia [Unknown]
  - Amenorrhoea [Unknown]
  - Dyspnoea [Unknown]
  - Fibroma [Recovered/Resolved]
  - Weight increased [Unknown]

NARRATIVE: CASE EVENT DATE: 20170123
